FAERS Safety Report 6357670-0 (Version None)
Quarter: 2009Q3

REPORT INFORMATION
  Report Type: 
  Country: None (occurrence: None)
  Receive Date: 20090916
  Receipt Date: 20090908
  Transmission Date: 20100115
  Serious: Yes (Death)
  Sender: FDA-Public Use
  Company Number: US-BRISTOL-MYERS SQUIBB COMPANY-14770937

PATIENT
  Age: 59 Year
  Sex: Female

DRUGS (12)
  1. CYCLOPHOSPHAMIDE [Suspect]
     Indication: NON-HODGKIN'S LYMPHOMA
  2. CISPLATIN [Suspect]
     Indication: NON-HODGKIN'S LYMPHOMA
  3. ETOPOSIDE [Suspect]
     Indication: NON-HODGKIN'S LYMPHOMA
  4. RITUXIMAB [Suspect]
     Indication: NON-HODGKIN'S LYMPHOMA
  5. ZEVALIN [Suspect]
     Indication: NON-HODGKIN'S LYMPHOMA
  6. FLUDARABINE [Suspect]
     Indication: NON-HODGKIN'S LYMPHOMA
  7. CYTARABINE [Suspect]
     Indication: NON-HODGKIN'S LYMPHOMA
  8. VINCRISTINE [Suspect]
     Indication: NON-HODGKIN'S LYMPHOMA
  9. MITOXANTRONE [Suspect]
     Indication: NON-HODGKIN'S LYMPHOMA
  10. PREDNISONE [Suspect]
     Indication: NON-HODGKIN'S LYMPHOMA
  11. METHYLPREDNISOLONE [Suspect]
     Indication: NON-HODGKIN'S LYMPHOMA
  12. DECADRON [Suspect]
     Indication: NON-HODGKIN'S LYMPHOMA

REACTIONS (1)
  - PROGRESSIVE MULTIFOCAL LEUKOENCEPHALOPATHY [None]
